FAERS Safety Report 6048815-0 (Version None)
Quarter: 2009Q1

REPORT INFORMATION
  Report Type: 
  Country: None (occurrence: None)
  Receive Date: 20090121
  Receipt Date: 20080827
  Transmission Date: 20090719
  Serious: Yes (Other)
  Sender: FDA-Public Use
  Company Number: US-WYE-H05767108

PATIENT
  Age: 46 Year
  Sex: Female
  Weight: 64.47 kg

DRUGS (2)
  1. PREMPRO [Suspect]
     Indication: HOT FLUSH
     Dosage: 0.45MG/1.5MG; DAILY; ORAL
     Route: 048
     Dates: start: 20080624, end: 20080701
  2. PREMPRO [Suspect]
     Indication: MENOPAUSE
     Dosage: 0.45MG/1.5MG; DAILY; ORAL
     Route: 048
     Dates: start: 20080624, end: 20080701

REACTIONS (1)
  - BREAST CYST [None]
